FAERS Safety Report 8877752 (Version 1)
Quarter: 2012Q4

REPORT INFORMATION
  Report Type: 
  Country: US (occurrence: US)
  Receive Date: 20121025
  Receipt Date: 20121025
  Transmission Date: 20130627
  Serious: No
  Sender: FDA-Public Use
  Company Number: US-AMGEN-USASP2012020126

PATIENT
  Age: 58 Year
  Sex: Female

DRUGS (2)
  1. ENBREL [Suspect]
     Indication: RHEUMATOID ARTHRITIS
     Dosage: 50 mg, qwk
     Dates: start: 20070801
  2. METHOTREXATE /00113802/ [Concomitant]
     Dosage: 6 mg, qwk
     Dates: start: 201109

REACTIONS (1)
  - Rheumatoid arthritis [Recovered/Resolved]
